FAERS Safety Report 23350239 (Version 1)
Quarter: 2023Q4

REPORT INFORMATION
  Report Type: Report from Study
  Country: US (occurrence: None)
  Receive Date: 20231229
  Receipt Date: 20231229
  Transmission Date: 20240110
  Serious: Yes (Death)
  Sender: FDA-Public Use
  Company Number: 2023A295623

PATIENT
  Sex: Male

DRUGS (2)
  1. LYNPARZA [Suspect]
     Active Substance: OLAPARIB
     Indication: Product used for unknown indication
     Dosage: 150MG TABLET -TAKE 2 TABLETS BY MOUTH TWICE A DAY
     Route: 048
  2. IMFINZI [Suspect]
     Active Substance: DURVALUMAB
     Indication: Product used for unknown indication
     Dosage: 500MG/10ML VIAL -INFUSE 1500MG INTRAVENOUSLY DAY 1 EVERY 21 DAYS
     Route: 042

REACTIONS (1)
  - Death [Fatal]
